FAERS Safety Report 6355027-X (Version None)
Quarter: 2009Q3

REPORT INFORMATION
  Report Type: 
  Country: None (occurrence: None)
  Receive Date: 20090914
  Receipt Date: 20090903
  Transmission Date: 20100115
  Serious: Yes (Other)
  Sender: FDA-Public Use
  Company Number: B0591988A

PATIENT
  Age: 57 Year
  Sex: Male

DRUGS (4)
  1. REQUIP [Suspect]
     Indication: PARKINSON'S DISEASE
     Route: 048
     Dates: start: 20070701
  2. REQUIP [Suspect]
     Dosage: 6MG THREE TIMES PER DAY
     Route: 048
     Dates: start: 20071005
  3. REQUIP [Suspect]
     Dosage: 3MG UNKNOWN
     Route: 048
     Dates: start: 20090828
  4. SELEGILINE HCL [Concomitant]
     Route: 048
     Dates: start: 20090801

REACTIONS (1)
  - SUDDEN ONSET OF SLEEP [None]
